FAERS Safety Report 7760212-6 (Version None)
Quarter: 2011Q3

REPORT INFORMATION
  Report Type: 
  Country: None (occurrence: None)
  Receive Date: 20110919
  Receipt Date: 20110913
  Transmission Date: 20111222
  Serious: Yes (Hospitalization)
  Sender: FDA-Public Use
  Company Number: US-GLAXOSMITHKLINE-A0916797A

PATIENT
  Age: 39 Year
  Sex: Male

DRUGS (1)
  1. AVANDARYL [Suspect]
     Indication: DIABETES MELLITUS
     Route: 048

REACTIONS (4)
  - ISCHAEMIA [None]
  - CORONARY ARTERY DISEASE [None]
  - VENTRICULAR EXTRASYSTOLES [None]
  - CORONARY ARTERY STENOSIS [None]
